FAERS Safety Report 6614562-7 (Version None)
Quarter: 2010Q1

REPORT INFORMATION
  Report Type: 
  Country: None (occurrence: None)
  Receive Date: 20100304
  Receipt Date: 20100304
  Transmission Date: 20100710
  Serious: Yes (Other)
  Sender: FDA-Public Use
  Company Number: None

PATIENT
  Age: 56 Year
  Sex: Female
  Weight: 60.3284 kg

DRUGS (2)
  1. VESICARE [Suspect]
     Indication: MULTIPLE SCLEROSIS
     Dosage: 10 MG 1/DAY ORAL
     Route: 048
     Dates: start: 19981101, end: 19990601
  2. VESICARE [Suspect]
     Indication: NEUROGENIC BLADDER
     Dosage: 10 MG 1/DAY ORAL
     Route: 048
     Dates: start: 19981101, end: 19990601

REACTIONS (3)
  - ACTIVITIES OF DAILY LIVING IMPAIRED [None]
  - CONFUSIONAL STATE [None]
  - MEMORY IMPAIRMENT [None]
